FAERS Safety Report 7064930-7 (Version None)
Quarter: 2010Q4

REPORT INFORMATION
  Report Type: 
  Country: None (occurrence: None)
  Receive Date: 20101027
  Receipt Date: 19920212
  Transmission Date: 20110411
  Serious: Yes (Death)
  Sender: FDA-Public Use
  Company Number: DE-ROCHE-920317764001

PATIENT
  Sex: Male
  Weight: 78 kg

DRUGS (4)
  1. ROCEPHIN [Suspect]
     Indication: BRONCHOPNEUMONIA
     Route: 042
     Dates: start: 19920117, end: 19920118
  2. CIPRO [Suspect]
     Indication: PNEUMONIA
     Route: 048
     Dates: start: 19920114, end: 19920118
  3. DIFLUCAN [Concomitant]
     Route: 048
     Dates: start: 19920110, end: 19920114
  4. VANCOMYCIN [Concomitant]
     Indication: BRONCHOPNEUMONIA
     Route: 042
     Dates: start: 19920117, end: 19920124

REACTIONS (2)
  - BLOOD BILIRUBIN INCREASED [None]
  - CHRONIC MYELOID LEUKAEMIA [None]
